FAERS Safety Report 23084726 (Version 1)
Quarter: 2023Q4

REPORT INFORMATION
  Report Type: Spontaneous
  Country: US (occurrence: None)
  Receive Date: 20231019
  Receipt Date: 20231019
  Transmission Date: 20240109
  Serious: Yes (Hospitalization)
  Sender: FDA-Public Use
  Company Number: None

PATIENT
  Age: 77 Year
  Sex: Male

DRUGS (1)
  1. AMPHOTERICIN B [Suspect]
     Active Substance: AMPHOTERICIN B
     Dates: start: 20230216, end: 20230222

REACTIONS (2)
  - Nephropathy toxic [None]
  - Blood creatinine increased [None]

NARRATIVE: CASE EVENT DATE: 20230222
